FAERS Safety Report 11718364 (Version 1)
Quarter: 2015Q4

REPORT INFORMATION
  Report Type: Spontaneous
  Country: ES (occurrence: ES)
  Receive Date: 20151110
  Receipt Date: 20151110
  Transmission Date: 20160304
  Serious: Yes (Other)
  Sender: FDA-Public Use
  Company Number: ES-FRESENIUS KABI-FK201505733

PATIENT
  Sex: Female

DRUGS (2)
  1. LIDOCAINE (MANUFACTURER UNKNOWN) [Suspect]
     Active Substance: LIDOCAINE
     Indication: CAESAREAN SECTION
     Route: 008
  2. LEVOBUPIVACAINE (MANUFACTURER UNKNOWN) [Suspect]
     Active Substance: LEVOBUPIVACAINE
     Indication: CAESAREAN SECTION
     Route: 008

REACTIONS (2)
  - Horner^s syndrome [Recovered/Resolved]
  - Exposure during pregnancy [Recovered/Resolved]
